FAERS Safety Report 13212630 (Version 1)
Quarter: 2017Q1

REPORT INFORMATION
  Report Type: Spontaneous
  Country: FR (occurrence: FR)
  Receive Date: 20170210
  Receipt Date: 20170210
  Transmission Date: 20170428
  Serious: Yes (Hospitalization)
  Sender: FDA-Public Use
  Company Number: FR-GILEAD-2017-0257196

PATIENT
  Age: 52 Year
  Sex: Male

DRUGS (9)
  1. CORTANCYL [Concomitant]
     Active Substance: PREDNISONE
  2. CARDENSIEL [Concomitant]
     Active Substance: BISOPROLOL FUMARATE
  3. LASILIX                            /00032601/ [Concomitant]
     Active Substance: FUROSEMIDE
  4. DAKLINZA [Suspect]
     Active Substance: DACLATASVIR
     Indication: CHRONIC HEPATITIS C
     Dosage: 60 MG, QD
     Route: 048
     Dates: start: 20170107, end: 20170118
  5. ALLOPURINOL. [Concomitant]
     Active Substance: ALLOPURINOL
  6. PREVISCAN                          /00261401/ [Concomitant]
     Active Substance: PENTOXIFYLLINE
  7. SOVALDI [Suspect]
     Active Substance: SOFOSBUVIR
     Indication: CHRONIC HEPATITIS C
     Dosage: 400 MG, QD
     Route: 048
     Dates: start: 20170107, end: 20170118
  8. TRIATEC                            /00116401/ [Concomitant]
     Active Substance: ACETAMINOPHEN\CODEINE PHOSPHATE
  9. MOPRAL                             /00661201/ [Concomitant]
     Active Substance: OMEPRAZOLE SODIUM

REACTIONS (4)
  - Vision blurred [Recovered/Resolved]
  - Tachycardia [Recovered/Resolved]
  - Fall [Unknown]
  - Malaise [Recovered/Resolved]

NARRATIVE: CASE EVENT DATE: 20170111
